FAERS Safety Report 6180526-3 (Version None)
Quarter: 2009Q2

REPORT INFORMATION
  Report Type: 
  Country: None (occurrence: None)
  Receive Date: 20090506
  Receipt Date: 20090504
  Transmission Date: 20091009
  Serious: No
  Sender: FDA-Public Use
  Company Number: US-B.I. PHARMACEUTICALS,INC./RIDGEFIELD-2009-BP-05532BP

PATIENT
  Sex: Female

DRUGS (4)
  1. CATAPRES-TTS-1 [Suspect]
     Indication: HYPERTENSION
     Dosage: .1MG
     Route: 061
     Dates: start: 20070901, end: 20090301
  2. NORVASC [Concomitant]
     Indication: HYPERTENSION
     Dates: start: 19990101
  3. AGGRENOX [Concomitant]
     Indication: ANTICOAGULANT THERAPY
     Dates: start: 20070901
  4. PROTONIX [Concomitant]
     Indication: ABDOMINAL DISCOMFORT
     Dates: start: 19990101

REACTIONS (1)
  - SKIN IRRITATION [None]
